FAERS Safety Report 4439224-6 (Version None)
Quarter: 2004Q3

REPORT INFORMATION
  Report Type: 
  Country: None (occurrence: None)
  Receive Date: 20040728
  Receipt Date: 20040315
  Transmission Date: 20050211
  Serious: No
  Sender: FDA-Public Use
  Company Number: USA040362019

PATIENT
  Age: 11 Year
  Sex: Male
  Weight: 59 kg

DRUGS (4)
  1. STRATTERA [Suspect]
     Dosage: 50 MG DAY
     Dates: start: 20031001, end: 20040101
  2. ZOLOFT [Concomitant]
  3. MELLARIL [Concomitant]
  4. STIMULANTS [Concomitant]

REACTIONS (3)
  - CONTUSION [None]
  - ERYTHEMA [None]
  - RASH PAPULAR [None]
